FAERS Safety Report 13758600 (Version 1)
Quarter: 2017Q3

REPORT INFORMATION
  Report Type: Spontaneous
  Country: JP (occurrence: JP)
  Receive Date: 20170717
  Receipt Date: 20170717
  Transmission Date: 20171127
  Serious: Yes (Death)
  Sender: FDA-Public Use
  Company Number: JP-UCBSA-2017024148

PATIENT
  Age: 2 Year
  Sex: Male

DRUGS (1)
  1. E KEPPRA [Suspect]
     Active Substance: LEVETIRACETAM
     Indication: PARTIAL SEIZURES
     Dosage: UNK
     Route: 048

REACTIONS (4)
  - Appetite disorder [Unknown]
  - Brain neoplasm [Fatal]
  - Affect lability [Unknown]
  - Off label use [Unknown]
